FAERS Safety Report 17110588 (Version 5)
Quarter: 2020Q1

REPORT INFORMATION
  Report Type: Spontaneous
  Country: US (occurrence: US)
  Receive Date: 20191204
  Receipt Date: 20200306
  Transmission Date: 20200409
  Serious: Yes (Other)
  Sender: FDA-Public Use
  Company Number: US-BAUSCH-BL-2019-062496

PATIENT
  Age: 92 Year
  Sex: Female

DRUGS (3)
  1. MURO 128 [Suspect]
     Active Substance: SODIUM CHLORIDE
     Dosage: 1 APPLICATION TO BOTH EYES AT BEDTIME
     Route: 047
     Dates: start: 201910, end: 20191118
  2. MURO 128 [Suspect]
     Active Substance: SODIUM CHLORIDE
     Indication: CORNEAL OEDEMA
     Dosage: 1 APPLICATION IN BOTH EYES
     Route: 047
     Dates: start: 20191016, end: 201910
  3. MURO 128 [Suspect]
     Active Substance: SODIUM CHLORIDE
     Indication: CORNEAL OEDEMA
     Dosage: 1 DROP IN BOTH EYES IN THE MORNING ONCE DAILY.
     Route: 047
     Dates: start: 20191016, end: 20191118

REACTIONS (11)
  - Vision blurred [Recovering/Resolving]
  - Drug ineffective [Unknown]
  - Nervousness [Recovering/Resolving]
  - Diarrhoea [Recovered/Resolved]
  - Tremor [Recovering/Resolving]
  - Road traffic accident [Unknown]
  - Visual impairment [Recovering/Resolving]
  - Dizziness [Recovering/Resolving]
  - Eye irritation [Recovering/Resolving]
  - Chills [Recovering/Resolving]
  - Contusion [Recovering/Resolving]

NARRATIVE: CASE EVENT DATE: 2019
